FAERS Safety Report 10897700 (Version 1)
Quarter: 2015Q1

REPORT INFORMATION
  Report Type: Spontaneous
  Country: US (occurrence: None)
  Receive Date: 20150302
  Receipt Date: 20150302
  Transmission Date: 20150721
  Serious: Yes (Death, Hospitalization)
  Sender: FDA-Public Use
  Company Number: None

PATIENT
  Age: 3 Year
  Sex: Male
  Weight: 15.5 kg

DRUGS (6)
  1. DEXAMETHASONE. [Suspect]
     Active Substance: DEXAMETHASONE
     Dates: end: 20150123
  2. CYTARABINE. [Suspect]
     Active Substance: CYTARABINE
     Dates: end: 20150109
  3. VINCRISTINE SULFATE. [Suspect]
     Active Substance: VINCRISTINE SULFATE
     Dates: end: 20150123
  4. ONCASPAR [Suspect]
     Active Substance: PEGASPARGASE
     Dates: end: 20150112
  5. DAUNORUBICIN [Suspect]
     Active Substance: DAUNORUBICIN
     Dates: end: 20150123
  6. METHOTREXATE [Suspect]
     Active Substance: METHOTREXATE
     Dates: end: 20150116

REACTIONS (5)
  - Mental status changes [None]
  - Stomatococcal infection [None]
  - Seizure [None]
  - Neutrophil count decreased [None]
  - Meningitis bacterial [None]

NARRATIVE: CASE EVENT DATE: 20150126
